FAERS Safety Report 6675727-1 (Version None)
Quarter: 2010Q2

REPORT INFORMATION
  Report Type: 
  Country: None (occurrence: None)
  Receive Date: 20100409
  Receipt Date: 20100401
  Transmission Date: 20101027
  Serious: Yes (Hospitalization, Other)
  Sender: FDA-Public Use
  Company Number: US-AMGEN-KDC388630

PATIENT
  Age: 59 Year
  Sex: Male
  Weight: 82.05 kg

DRUGS (3)
  1. PANITUMUMAB [Suspect]
     Indication: PANCREATIC CARCINOMA
     Route: 042
     Dates: start: 20091207
  2. FLUOROURACIL [Suspect]
     Route: 042
     Dates: start: 20091207
  3. RADIATION THERAPY [Suspect]
     Dates: start: 20091207

REACTIONS (9)
  - ALANINE AMINOTRANSFERASE INCREASED [None]
  - ASPARTATE AMINOTRANSFERASE INCREASED [None]
  - BILIARY TRACT INFECTION [None]
  - BLOOD ALKALINE PHOSPHATASE INCREASED [None]
  - BLOOD CULTURE POSITIVE [None]
  - DEVICE RELATED INFECTION [None]
  - EXFOLIATIVE RASH [None]
  - HYPERBILIRUBINAEMIA [None]
  - LYMPHOPENIA [None]
